FAERS Safety Report 8259250-9 (Version None)
Quarter: 2012Q2

REPORT INFORMATION
  Report Type: 
  Country: None (occurrence: None)
  Receive Date: 20120404
  Receipt Date: 20120326
  Transmission Date: 20120825
  Serious: Yes (Other)
  Sender: FDA-Public Use
  Company Number: US-ASTRAZENECA-2010SE06211

PATIENT
  Age: 60 Year
  Sex: Female

DRUGS (1)
  1. ARIMIDEX [Suspect]
     Route: 048

REACTIONS (5)
  - HOT FLUSH [None]
  - LOSS OF CONSCIOUSNESS [None]
  - HEAD INJURY [None]
  - HEART RATE DECREASED [None]
  - MALAISE [None]
